FAERS Safety Report 10926023 (Version 1)
Quarter: 2015Q1

REPORT INFORMATION
  Report Type: Spontaneous
  Country: US (occurrence: None)
  Receive Date: 20150129
  Receipt Date: 20150129
  Transmission Date: 20150721
  Serious: No
  Sender: FDA-Public Use
  Company Number: A-NJ2014-105205

PATIENT
  Age: 67 Year
  Sex: Male

DRUGS (3)
  1. REVATIO (SILDENAFIL CITRATE) [Concomitant]
  2. OPSUMIT [Suspect]
     Active Substance: MACITENTAN
     Indication: PULMONARY ARTERIAL HYPERTENSION
     Route: 048
     Dates: start: 20140429
  3. RIOCIGUAT [Concomitant]
     Active Substance: RIOCIGUAT

REACTIONS (4)
  - Dyspnoea exertional [None]
  - Oxygen consumption increased [None]
  - Oedema peripheral [None]
  - Total lung capacity decreased [None]
